FAERS Safety Report 10645039 (Version 1)
Quarter: 2014Q4

REPORT INFORMATION
  Report Type: Spontaneous
  Country: US (occurrence: None)
  Receive Date: 20141210
  Receipt Date: 20141210
  Transmission Date: 20150529
  Serious: Yes (Other)
  Sender: FDA-Public Use
  Company Number: None

PATIENT
  Age: 61 Year
  Sex: Female
  Weight: 59.88 kg

DRUGS (1)
  1. RALOXIFENE [Suspect]
     Active Substance: RALOXIFENE
     Indication: INTRADUCTAL PROLIFERATIVE BREAST LESION
     Route: 048
     Dates: start: 20141110, end: 20141114

REACTIONS (4)
  - Pruritus [None]
  - No therapeutic response [None]
  - Product substitution issue [None]
  - Therapeutic response changed [None]

NARRATIVE: CASE EVENT DATE: 20141114
